FAERS Safety Report 24436196 (Version 1)
Quarter: 2024Q4

REPORT INFORMATION
  Report Type: Spontaneous
  Country: LT (occurrence: LT)
  Receive Date: 20241015
  Receipt Date: 20241015
  Transmission Date: 20250114
  Serious: Yes (Hospitalization, Other)
  Sender: GILEAD
  Company Number: LT-GILEAD-2024-0690058

PATIENT
  Age: 54 Year
  Sex: Male

DRUGS (1)
  1. EPCLUSA [Suspect]
     Active Substance: SOFOSBUVIR\VELPATASVIR
     Indication: Chronic hepatitis C
     Dosage: 1 DOSAGE FORM, X1K/D FOR 8 WEEKS (UP TO A 12-WEEK COURSE).
     Route: 065

REACTIONS (4)
  - Hepatic cirrhosis [Unknown]
  - Hepatic encephalopathy [Recovered/Resolved]
  - Somnolence [Recovered/Resolved]
  - Altered state of consciousness [Recovered/Resolved]
